FAERS Safety Report 7831147-5 (Version None)
Quarter: 2011Q4

REPORT INFORMATION
  Report Type: 
  Country: None (occurrence: None)
  Receive Date: 20111021
  Receipt Date: 20111020
  Transmission Date: 20120403
  Serious: Yes (Death, Life-Threatening)
  Sender: FDA-Public Use
  Company Number: GB-ROCHE-801259

PATIENT
  Sex: Female
  Weight: 95 kg

DRUGS (28)
  1. CAMPATH [Concomitant]
     Indication: CHRONIC LYMPHOCYTIC LEUKAEMIA
     Route: 042
     Dates: start: 20100101
  2. RISEDRONATE NATRIUM [Concomitant]
  3. OMEPRAZOLE [Concomitant]
  4. SENNA [Concomitant]
     Indication: CONSTIPATION
     Route: 065
  5. CHLORHEXIDINE MOUTHWASH [Concomitant]
     Route: 065
  6. ACYCLOVIR [Concomitant]
     Indication: ANTIVIRAL PROPHYLAXIS
     Route: 065
  7. CETIRIZINE DIHYDROCHLORIDE [Concomitant]
     Indication: HYPERSENSITIVITY
  8. OILATUM (CANADA) [Concomitant]
  9. MABTHERA [Suspect]
     Indication: CHRONIC LYMPHOCYTIC LEUKAEMIA
     Route: 042
     Dates: start: 20110804, end: 20110804
  10. CANDESARTAN CILEXETIL [Concomitant]
     Indication: BLOOD PRESSURE
     Route: 065
  11. ATORVASTATIN [Concomitant]
     Indication: BLOOD CHOLESTEROL
  12. LEVOTHYROXINE SODIUM [Concomitant]
     Dosage: 100 MCG
     Route: 065
  13. FLUDARA [Concomitant]
     Indication: CHRONIC LYMPHOCYTIC LEUKAEMIA
     Route: 048
     Dates: start: 20010101
  14. PREDNISOLONE [Concomitant]
     Route: 065
  15. FCFD4514S [Concomitant]
     Indication: CHRONIC LYMPHOCYTIC LEUKAEMIA
     Route: 065
     Dates: start: 20090101
  16. RANITIDINE [Concomitant]
  17. AMITRIPTYLINE HCL [Concomitant]
     Route: 065
  18. AMITRIPTYLINE HCL [Concomitant]
     Route: 065
  19. DAPSONE [Concomitant]
     Route: 065
  20. LACTULOSE [Concomitant]
     Indication: CONSTIPATION
     Route: 065
  21. FLUCONAZOLE [Concomitant]
     Indication: CANDIDIASIS
     Route: 065
  22. BENDAMUSTINA [Suspect]
     Indication: CHRONIC LYMPHOCYTIC LEUKAEMIA
     Route: 042
     Dates: start: 20110804, end: 20110805
  23. CAMPATH [Concomitant]
     Route: 042
     Dates: start: 20100501
  24. PROMETHAZINE [Concomitant]
     Indication: MOTION SICKNESS
     Route: 065
  25. CALCICHEW D3 FORTE [Concomitant]
  26. ALLOPURINOL [Concomitant]
     Route: 065
  27. ONDANSETRON [Concomitant]
     Indication: MALAISE
     Route: 065
  28. METOCLOPRAMIDE [Concomitant]
     Indication: MALAISE
     Dosage: WHEN REQUIRED
     Route: 065

REACTIONS (1)
  - PROGRESSIVE MULTIFOCAL LEUKOENCEPHALOPATHY [None]
